FAERS Safety Report 23552481 (Version 1)
Quarter: 2024Q1

REPORT INFORMATION
  Report Type: Spontaneous
  Country: GB (occurrence: GB)
  Receive Date: 20240222
  Receipt Date: 20240222
  Transmission Date: 20240410
  Serious: Yes (Hospitalization)
  Sender: FDA-Public Use
  Company Number: GB-SUN PHARMACEUTICAL INDUSTRIES LTD-2024RR-432780

PATIENT
  Age: 83 Year
  Sex: Female

DRUGS (4)
  1. CIPROFLOXACIN [Suspect]
     Active Substance: CIPROFLOXACIN
     Indication: Product used for unknown indication
     Dosage: UNK
     Route: 065
  2. CLOZARIL [Suspect]
     Active Substance: CLOZAPINE
     Indication: Product used for unknown indication
     Dosage: 12.5 MILLIGRAM, PM (AT NIGHT)
     Route: 048
  3. CLOZARIL [Suspect]
     Active Substance: CLOZAPINE
     Dosage: UNK
     Route: 048
     Dates: start: 20210325, end: 20240124
  4. CLOZARIL [Suspect]
     Active Substance: CLOZAPINE
     Dosage: 6.25 MILLIGRAM, AT NIGHT 1 DOSE
     Route: 048

REACTIONS (8)
  - Dehydration [Unknown]
  - Confusional state [Unknown]
  - Delirium [Unknown]
  - White blood cell count decreased [Recovered/Resolved]
  - Eosinophil count decreased [Unknown]
  - Somnolence [Unknown]
  - Contraindicated product administered [Unknown]
  - Off label use [Unknown]

NARRATIVE: CASE EVENT DATE: 20231222
